FAERS Safety Report 8140538-7 (Version None)
Quarter: 2012Q1

REPORT INFORMATION
  Report Type: 
  Country: None (occurrence: None)
  Receive Date: 20120216
  Receipt Date: 20120213
  Transmission Date: 20120608
  Serious: Yes (Other)
  Sender: FDA-Public Use
  Company Number: CA-PFIZER INC-2011304636

PATIENT
  Age: 44 Year
  Sex: Male
  Weight: 75 kg

DRUGS (4)
  1. DEXLANSOPRAZOLE [Concomitant]
     Indication: GASTROOESOPHAGEAL REFLUX DISEASE
     Dosage: 60 MG, 1X/DAY
     Route: 048
     Dates: start: 20110401, end: 20110501
  2. EFFEXOR [Concomitant]
     Dosage: 37 MG, 1X/DAY
     Route: 048
     Dates: start: 20100601, end: 20100701
  3. LYRICA [Suspect]
     Indication: PAIN
     Dosage: 50 MG, 1X/DAY
     Route: 048
     Dates: start: 20090101
  4. MINOCIN [Concomitant]
     Indication: SKIN DISORDER
     Dosage: 100 MG, 1X/DAY
     Route: 048
     Dates: start: 20101001, end: 20101201

REACTIONS (1)
  - INTRAOCULAR PRESSURE INCREASED [None]
